FAERS Safety Report 15858523 (Version 1)
Quarter: 2019Q1

REPORT INFORMATION
  Report Type: Spontaneous
  Country: US (occurrence: US)
  Receive Date: 20190123
  Receipt Date: 20190123
  Transmission Date: 20190417
  Serious: Yes (Death)
  Sender: FDA-Public Use
  Company Number: None

PATIENT
  Sex: Female

DRUGS (6)
  1. CAPECITABINE. [Suspect]
     Active Substance: CAPECITABINE
     Indication: PANCREATIC CARCINOMA
     Dosage: ?          OTHER FREQUENCY:BID FOR 14 DAYS;?
     Route: 048
     Dates: start: 20181210
  2. PREDNISONE, PROCHLORPER [Concomitant]
  3. DULCOLAX, ENOXAPARIN [Concomitant]
  4. INDAPAMIDE, OXYCONTIN [Concomitant]
  5. EVISTA, FLUTICASONE [Concomitant]
  6. GRANISETRON, HYDROXYZ [Concomitant]

REACTIONS (1)
  - Death [None]
